FAERS Safety Report 4864589-0 (Version None)
Quarter: 2005Q4

REPORT INFORMATION
  Report Type: 
  Country: None (occurrence: None)
  Receive Date: 20051222
  Receipt Date: 20051213
  Transmission Date: 20060501
  Serious: Yes (Other)
  Sender: FDA-Public Use
  Company Number: PHRM2005FR03287

PATIENT
  Age: 79 Year
  Sex: Male

DRUGS (1)
  1. TEGRETOL [Suspect]
     Indication: CONVULSION
     Dosage: 200 MG, BID
     Route: 048
     Dates: start: 20051001

REACTIONS (3)
  - DELUSIONAL DISORDER, PERSECUTORY TYPE [None]
  - HALLUCINATION, VISUAL [None]
  - MYDRIASIS [None]
